FAERS Safety Report 4489501-8 (Version None)
Quarter: 2004Q4

REPORT INFORMATION
  Report Type: 
  Country: None (occurrence: None)
  Receive Date: 20041101
  Receipt Date: 20041026
  Transmission Date: 20050328
  Serious: Yes (Other)
  Sender: FDA-Public Use
  Company Number: PHEH2004US11567

PATIENT
  Age: 44 Year
  Sex: Male

DRUGS (1)
  1. CLOZARIL [Suspect]
     Dosage: UNK, UNK
     Route: 048
     Dates: start: 19911014

REACTIONS (3)
  - GASTRIC CANCER [None]
  - LEUKOPENIA [None]
  - SURGERY [None]
